FAERS Safety Report 9566365 (Version 4)
Quarter: 2013Q4

REPORT INFORMATION
  Report Type: Spontaneous
  Country: US (occurrence: US)
  Receive Date: 20130930
  Receipt Date: 20131203
  Transmission Date: 20140711
  Serious: Yes (Death, Hospitalization, Other)
  Sender: FDA-Public Use
  Company Number: US-BAXTER-2013BAX037597

PATIENT
  Age: 74 Year
  Sex: Male

DRUGS (4)
  1. DIANEAL LOW CALCIUM [Suspect]
     Indication: PERITONEAL DIALYSIS
     Route: 033
     Dates: end: 20131001
  2. DIANEAL LOW CALCIUM [Suspect]
     Route: 033
     Dates: start: 20131022, end: 20131027
  3. DIANEAL LOW CALCIUM [Suspect]
     Indication: PERITONEAL DIALYSIS
     Route: 033
     Dates: end: 20131001
  4. DIANEAL LOW CALCIUM [Suspect]
     Route: 033
     Dates: start: 20131022, end: 20131027

REACTIONS (8)
  - Sepsis [Fatal]
  - Organ failure [Fatal]
  - Hip fracture [Not Recovered/Not Resolved]
  - Fall [Unknown]
  - Contusion [Not Recovered/Not Resolved]
  - Osteomyelitis [Not Recovered/Not Resolved]
  - Infection [Unknown]
  - Hypotension [Recovered/Resolved]
